FAERS Safety Report 4988692-X (Version None)
Quarter: 2006Q2

REPORT INFORMATION
  Report Type: 
  Country: None (occurrence: None)
  Receive Date: 20060502
  Receipt Date: 20060106
  Transmission Date: 20061013
  Serious: Yes (Hospitalization)
  Sender: FDA-Public Use
  Company Number: US-MERCK-0601USA01791

PATIENT
  Age: 45 Year
  Sex: Female
  Weight: 91 kg

DRUGS (7)
  1. VIOXX [Suspect]
     Indication: BACK PAIN
     Route: 048
     Dates: start: 20030701, end: 20040101
  2. VIOXX [Suspect]
     Route: 048
  3. [THERAPY UNSPECIFIED] [Concomitant]
     Indication: ASTHMA
     Route: 065
  4. TYLENOL (CAPLET) [Concomitant]
     Indication: PAIN IN EXTREMITY
     Route: 065
     Dates: start: 20030101
  5. NAPROSYN [Concomitant]
     Route: 065
     Dates: start: 20030101
  6. MOTRIN [Concomitant]
     Route: 065
     Dates: start: 20030101
  7. VIOXX [Suspect]
     Route: 048
     Dates: start: 20030701, end: 20040101

REACTIONS (7)
  - ASTHMA [None]
  - CARDIAC DISORDER [None]
  - CHEST PAIN [None]
  - PAIN IN EXTREMITY [None]
  - POOR QUALITY SLEEP [None]
  - RENAL DISORDER [None]
  - RESPIRATORY DISORDER [None]
